FAERS Safety Report 4704840-0 (Version None)
Quarter: 2005Q3

REPORT INFORMATION
  Report Type: 
  Country: None (occurrence: None)
  Receive Date: 20050701
  Receipt Date: 20050608
  Transmission Date: 20060218
  Serious: Yes (Death)
  Sender: FDA-Public Use
  Company Number: 2005SE03402

PATIENT
  Age: 24869 Day
  Sex: Female
  Weight: 60 kg

DRUGS (7)
  1. SEROQUEL [Suspect]
     Indication: PERSONALITY DISORDER
     Route: 048
     Dates: start: 20050214
  2. SEROQUEL [Suspect]
     Indication: ANXIETY
     Route: 048
     Dates: start: 20050214
  3. SEROQUEL [Suspect]
     Indication: DELUSION
     Route: 048
     Dates: start: 20050214
  4. RAMIPRIL [Suspect]
     Indication: CARDIOMYOPATHY
     Route: 048
  5. REMERON [Suspect]
     Indication: ANTIDEPRESSANT THERAPY
     Route: 048
  6. STILNOCT [Suspect]
     Indication: SLEEP DISORDER THERAPY
     Route: 048
  7. NOZINAN [Suspect]
     Indication: ANXIETY
     Route: 048

REACTIONS (3)
  - COMPLETED SUICIDE [None]
  - INTENTIONAL MISUSE [None]
  - MULTIPLE DRUG OVERDOSE [None]
